FAERS Safety Report 11484714 (Version 1)
Quarter: 2015Q3

REPORT INFORMATION
  Report Type: Spontaneous
  Country: US (occurrence: US)
  Receive Date: 20150903
  Receipt Date: 20150903
  Transmission Date: 20151125
  Serious: No
  Sender: FDA-Public Use
  Company Number: US-ELI_LILLY_AND_COMPANY-US201208006320

PATIENT
  Age: 61 Year
  Sex: Female

DRUGS (1)
  1. CYMBALTA [Suspect]
     Active Substance: DULOXETINE HYDROCHLORIDE
     Indication: FIBROMYALGIA
     Dosage: 30 MG, QD

REACTIONS (7)
  - Abdominal discomfort [Unknown]
  - Paraesthesia [Unknown]
  - Fall [Unknown]
  - Dizziness [Unknown]
  - Clavicle fracture [Unknown]
  - Nausea [Unknown]
  - Diarrhoea [Unknown]
